FAERS Safety Report 11797866 (Version 1)
Quarter: 2015Q4

REPORT INFORMATION
  Report Type: Spontaneous
  Country: US (occurrence: US)
  Receive Date: 20151203
  Receipt Date: 20151203
  Transmission Date: 20160305
  Serious: Yes (Other)
  Sender: FDA-Public Use
  Company Number: US-ENDO PHARMACEUTICALS INC.-2015-003284

PATIENT
  Age: 41 Year
  Sex: Male
  Weight: 102.15 kg

DRUGS (2)
  1. NATESTO [Suspect]
     Active Substance: TESTOSTERONE
     Indication: HYPOGONADISM
     Route: 065
  2. NATESTO [Suspect]
     Active Substance: TESTOSTERONE
     Route: 045
     Dates: start: 20151007

REACTIONS (5)
  - Sinus disorder [Recovered/Resolved]
  - Incorrect dose administered [Recovered/Resolved]
  - Throat irritation [Recovered/Resolved]
  - Blood pressure increased [Recovered/Resolved]
  - Tachycardia [Recovered/Resolved]

NARRATIVE: CASE EVENT DATE: 20151007
